FAERS Safety Report 19665754 (Version 1)
Quarter: 2021Q3

REPORT INFORMATION
  Report Type: Spontaneous
  Country: US (occurrence: US)
  Receive Date: 20210806
  Receipt Date: 20210806
  Transmission Date: 20211014
  Serious: Yes (Other)
  Sender: FDA-Public Use
  Company Number: US-ACCORD-220448

PATIENT
  Age: 56 Year
  Sex: Female
  Weight: 65.6 kg

DRUGS (4)
  1. DOCETAXEL ACCORD [Suspect]
     Active Substance: DOCETAXEL
     Indication: CHEMOTHERAPY
     Dosage: ONCE
     Route: 042
     Dates: start: 20190619, end: 20191001
  2. CARBOPLATIN. [Suspect]
     Active Substance: CARBOPLATIN
     Indication: BREAST CANCER
     Dosage: ONCE
     Route: 042
     Dates: start: 20190619
  3. HERCEPTIN [Suspect]
     Active Substance: TRASTUZUMAB
     Indication: BREAST CANCER
     Route: 042
     Dates: start: 20190619
  4. PERTUZUMAB. [Suspect]
     Active Substance: PERTUZUMAB
     Indication: BREAST CANCER
     Dosage: ONCE
     Route: 042
     Dates: start: 20190619

REACTIONS (4)
  - Vulvovaginal dryness [Unknown]
  - Lacrimation increased [Unknown]
  - Neuropathy peripheral [Unknown]
  - Dacryostenosis acquired [Unknown]
